FAERS Safety Report 7016216-4 (Version None)
Quarter: 2010Q3

REPORT INFORMATION
  Report Type: 
  Country: None (occurrence: None)
  Receive Date: 20100927
  Receipt Date: 20100204
  Transmission Date: 20110219
  Serious: No
  Sender: FDA-Public Use
  Company Number: US-ASTRAZENECA-2010SE05182

PATIENT
  Age: 63 Year
  Sex: Female

DRUGS (1)
  1. ARIMIDEX [Suspect]
     Indication: BREAST CANCER
     Route: 048
     Dates: start: 20100121

REACTIONS (8)
  - DEPRESSION [None]
  - FATIGUE [None]
  - MYALGIA [None]
  - PAIN OF SKIN [None]
  - PRURITUS [None]
  - SINUS HEADACHE [None]
  - THERAPEUTIC RESPONSE UNEXPECTED [None]
  - TINNITUS [None]
